FAERS Safety Report 8540403-7 (Version None)
Quarter: 2012Q3

REPORT INFORMATION
  Report Type: 
  Country: None (occurrence: None)
  Receive Date: 20120726
  Receipt Date: 20110408
  Transmission Date: 20120928
  Serious: No
  Sender: FDA-Public Use
  Company Number: US-ASTRAZENECA-2011SE20296

PATIENT
  Age: 28 Year
  Sex: Male
  Weight: 93.9 kg

DRUGS (4)
  1. PRILOSEC [Concomitant]
     Indication: GASTRIC PH DECREASED
  2. SEROQUEL [Suspect]
     Indication: BIPOLAR DISORDER
     Route: 048
  3. PROZAC [Concomitant]
     Indication: NIGHTMARE
  4. KLONOPIN [Concomitant]

REACTIONS (2)
  - BRUXISM [None]
  - TOOTH FRACTURE [None]
